FAERS Safety Report 5861239-1 (Version None)
Quarter: 2008Q3

REPORT INFORMATION
  Report Type: 
  Country: None (occurrence: None)
  Receive Date: 20080827
  Receipt Date: 20080324
  Transmission Date: 20090109
  Serious: No
  Sender: FDA-Public Use
  Company Number: US-ABBOTT-08P-163-0443840-00

PATIENT
  Age: 40 Year
  Sex: Male
  Weight: 104.42 kg

DRUGS (3)
  1. COATED PDS [Suspect]
     Indication: BLOOD CHOLESTEROL INCREASED
     Route: 048
     Dates: start: 20080223, end: 20080320
  2. COATED PDS [Suspect]
     Route: 048
     Dates: start: 20080320, end: 20080322
  3. ASTHMA MEDICATION [Concomitant]
     Indication: ASTHMA

REACTIONS (10)
  - GENERALISED ERYTHEMA [None]
  - HEART RATE INCREASED [None]
  - HYPERHIDROSIS [None]
  - HYPOAESTHESIA [None]
  - MUSCLE SPASMS [None]
  - MUSCLE TWITCHING [None]
  - PRURITUS GENERALISED [None]
  - SKIN DISCOLOURATION [None]
  - TREMOR [None]
  - VASODILATATION [None]
